FAERS Safety Report 13011028 (Version 7)
Quarter: 2017Q1

REPORT INFORMATION
  Report Type: Report from Study
  Country: US (occurrence: US)
  Receive Date: 20161208
  Receipt Date: 20170308
  Transmission Date: 20170428
  Serious: Yes (Hospitalization)
  Sender: FDA-Public Use
  Company Number: US-ACTELION-A-US2016-146661

PATIENT
  Age: 38 Year
  Sex: Male
  Weight: 57.6 kg

DRUGS (4)
  1. WARFARIN [Concomitant]
     Active Substance: WARFARIN
  2. TYVASO [Concomitant]
     Active Substance: TREPROSTINIL
  3. ADEMPAS [Concomitant]
     Active Substance: RIOCIGUAT
  4. TRACLEER [Suspect]
     Active Substance: BOSENTAN
     Indication: PULMONARY ARTERIAL HYPERTENSION
     Dosage: 125 MG, BID
     Route: 048
     Dates: start: 20160811

REACTIONS (15)
  - Chest pain [Unknown]
  - Fatigue [Unknown]
  - Palpitations [Unknown]
  - Onychomadesis [Unknown]
  - Heart rate increased [Unknown]
  - Dyspnoea [Unknown]
  - Hypotension [Unknown]
  - Anxiety [Unknown]
  - International normalised ratio increased [Unknown]
  - Productive cough [Unknown]
  - Pain [Unknown]
  - Condition aggravated [Unknown]
  - Cough [Unknown]
  - Headache [Unknown]
  - Pulmonary embolism [Unknown]
